FAERS Safety Report 5568923-8 (Version None)
Quarter: 2007Q4

REPORT INFORMATION
  Report Type: 
  Country: None (occurrence: None)
  Receive Date: 20071217
  Receipt Date: 20071203
  Transmission Date: 20080405
  Serious: Yes (Other)
  Sender: FDA-Public Use
  Company Number: 107#03#2007-05137

PATIENT
  Age: 46 Year
  Sex: Female

DRUGS (1)
  1. MIRTAZAPINE [Suspect]
     Indication: DEPRESSION
     Dosage: 15 MG/DAY INCREASED TO 30 MG/DAY, DECREASED
     Dates: end: 20071101

REACTIONS (2)
  - DYSPNOEA [None]
  - NOCTURNAL DYSPNOEA [None]
